FAERS Safety Report 9335788 (Version 5)
Quarter: 2013Q3

REPORT INFORMATION
  Report Type: Report from Study
  Country: US (occurrence: US)
  Receive Date: 20130607
  Receipt Date: 20130730
  Transmission Date: 20140515
  Serious: Yes (Death)
  Sender: FDA-Public Use
  Company Number: US-PFIZER INC-2012129164

PATIENT
  Age: 73 Year
  Sex: Male
  Weight: 84.9 kg

DRUGS (26)
  1. INOTUZUMAB OZOGAMICIN [Suspect]
     Indication: NON-HODGKIN^S LYMPHOMA
     Dosage: 3.78 MG, X DAY 2 OF EACH 28 DAY CYCLE
     Route: 042
     Dates: start: 20120209, end: 20120209
  2. RITUXIMAB [Suspect]
     Indication: NON-HODGKIN^S LYMPHOMA
     Dosage: 800 MG, DAY1,8,15,22 OF CYCLE1, THEN DAY1 FOR SUBSEQUENT CYCLE OR X DAY1OF EACH 28 DAY CYCLE
     Route: 042
     Dates: start: 20120208, end: 20120208
  3. CYCLOPHOSPHAMIDE [Suspect]
     Indication: CHRONIC LYMPHOCYTIC LEUKAEMIA
     Dosage: UNK, CYCLIC RECEIVED 5 CYCLES
     Route: 042
     Dates: start: 20070314, end: 20070713
  4. DOXORUBICIN HCL [Suspect]
     Indication: CHRONIC LYMPHOCYTIC LEUKAEMIA
     Dosage: UNK, CYCLIC RECEIVED 5 CYCLES
     Route: 042
     Dates: start: 20070314, end: 20070713
  5. SUBLIMAZE [Concomitant]
     Dosage: 1 ML, (50 MCG/ML SOLN), EVERY HOUR AS NEEDED
     Route: 042
  6. DURAGESIC [Concomitant]
     Dosage: 50 UG, EVERY 1 PATCH, EVERY 72 HOURS
     Route: 058
  7. NEURONTIN [Concomitant]
     Dosage: 500 MG, 3X/DAY (100 MG CAPSULE, 5 CAPSULES THREE TIMES DAILY)
     Route: 048
  8. OXYIR [Concomitant]
     Indication: PAIN
     Dosage: 15 MG, EVERY 4 HOURS AS NEEDED
     Route: 048
  9. ZOVIRAX [Concomitant]
     Dosage: 800 MG, 2X/DAY
     Route: 048
  10. CORTEF [Concomitant]
     Dosage: 20MG TABLET, TAKE 2 TABS TWICE DAILY WITH MEALS
     Route: 048
  11. REGLAN [Concomitant]
     Dosage: 10 MG, 4X/DAY
     Route: 048
  12. MIRALAX \ GLYCOLAX [Concomitant]
     Dosage: 17 G, TWICE DAILY AS NEEDED
     Route: 048
  13. SENOKOT-S [Concomitant]
     Dosage: 8.6/50 MG TABLET, 1 TAB THREE TIMES DAILY AS NEEDED.
     Route: 048
  14. PROTONIX [Concomitant]
     Dosage: 40 MG, TAKE 1 TAB BY MOUTH DAILY
     Route: 048
  15. LIDODERM [Concomitant]
     Dosage: 5 %, 2X/DAY (EVERY 12 HOURS)
     Route: 061
  16. ELAVIL [Concomitant]
     Dosage: 25 MG,  1 TAB AT BEDTIME DAILY
     Route: 048
  17. DILAUDID [Concomitant]
     Dosage: 2 MG/ML SYRG, ADMINISTER 0.5-1ML THROUGH VEIN EVERY 4 HOURS AS NEEDED
     Route: 042
  18. ZOFRAN [Concomitant]
     Indication: NAUSEA
     Dosage: 2 ML (4 MG/2 ML), EVERY 6 HOURS AS NEEDED
     Route: 042
  19. ZOFRAN [Concomitant]
     Indication: VOMITING
     Dosage: 8 MG, EVERY 8 HOURS AS NEEDED
     Route: 048
  20. K-DUR [Concomitant]
     Dosage: 20 MEQ TABLET TAKE 1 TAB BY MOUTH DAILY. FOR 5 DAYS
     Route: 048
  21. ATIVAN [Concomitant]
     Indication: PAIN
     Dosage: 0.5 MG TABLET, 1 TAB EVERY 4 HOURS AS NEEDED
     Route: 048
  22. ATIVAN [Concomitant]
     Indication: NAUSEA
  23. DIFLUCAN [Concomitant]
     Indication: PAIN
     Dosage: 200 MG TABLET,  ONE TABLET DAILY FOR ONE WEEK (START 2 WEEKS AFTER EACH CHEMOTHE-
     Route: 048
     Dates: start: 20111201
  24. DIFLUCAN [Concomitant]
     Indication: NAUSEA
  25. COREG [Concomitant]
     Dosage: 3.125 MG, 2X/DAY
     Route: 048
  26. FLONASE [Concomitant]
     Dosage: 50 MEG/ACTUATION NA 2 SPRAYS TWICE DAILY
     Route: 045

REACTIONS (5)
  - Disease progression [Fatal]
  - Non-Hodgkin^s lymphoma [Fatal]
  - Myelodysplastic syndrome [Fatal]
  - Second primary malignancy [Fatal]
  - Acute myeloid leukaemia [Fatal]
